FAERS Safety Report 24828854 (Version 1)
Quarter: 2025Q1

REPORT INFORMATION
  Report Type: Report from Study
  Country: US (occurrence: US)
  Receive Date: 20250110
  Receipt Date: 20250110
  Transmission Date: 20250409
  Serious: Yes (Hospitalization)
  Sender: ACADIA PHARMACEUTICALS
  Company Number: US-ACADIA PHARMACEUTICALS INC.-ACA-2025-PIM-000247

PATIENT
  Age: 84 Year
  Sex: Male

DRUGS (12)
  1. NUPLAZID [Suspect]
     Active Substance: PIMAVANSERIN TARTRATE
     Indication: Parkinson^s disease
     Dosage: 34 MILLIGRAM, QD
     Route: 048
     Dates: start: 20240405
  2. ACETAMINOPHEN [Concomitant]
     Active Substance: ACETAMINOPHEN
  3. ASPIRIN [Concomitant]
     Active Substance: ASPIRIN
  4. CARBIDOPA LEVODOPA [Concomitant]
     Active Substance: CARBIDOPA\LEVODOPA
  5. VITAMIN B12 [Concomitant]
     Active Substance: CYANOCOBALAMIN
  6. DOCUSATE [Concomitant]
     Active Substance: DOCUSATE
  7. FOLIC ACID [Concomitant]
     Active Substance: FOLIC ACID
  8. IBUPROFEN [Concomitant]
     Active Substance: IBUPROFEN
  9. OCUSOFT V.M.S. [Concomitant]
  10. MICONAZORB AF [Concomitant]
     Active Substance: MICONAZOLE NITRATE
  11. RIVASTIGMINE [Concomitant]
     Active Substance: RIVASTIGMINE
  12. TAMSULOSIN [Concomitant]
     Active Substance: TAMSULOSIN

REACTIONS (1)
  - Respiratory syncytial virus infection [Recovered/Resolved]

NARRATIVE: CASE EVENT DATE: 20241118
